FAERS Safety Report 19305682 (Version 3)
Quarter: 2021Q2

REPORT INFORMATION
  Report Type: Spontaneous
  Country: US (occurrence: US)
  Receive Date: 20210526
  Receipt Date: 20210601
  Transmission Date: 20210717
  Serious: No
  Sender: FDA-Public Use
  Company Number: US-BAYER-2021-145851

PATIENT
  Age: 71 Year
  Sex: Female

DRUGS (2)
  1. CLIMARA PRO [Suspect]
     Active Substance: ESTRADIOL\LEVONORGESTREL
     Indication: PREMENSTRUAL SYNDROME
     Dosage: 0.045 MG
     Route: 062
     Dates: start: 2021
  2. CLIMARA PRO [Suspect]
     Active Substance: ESTRADIOL\LEVONORGESTREL
     Indication: HORMONE REPLACEMENT THERAPY

REACTIONS (7)
  - Device adhesion issue [None]
  - Premenstrual syndrome [None]
  - Emotional disorder [None]
  - Product physical issue [None]
  - Device defective [None]
  - Malaise [None]
  - Insomnia [None]

NARRATIVE: CASE EVENT DATE: 20210517
